FAERS Safety Report 6054937-0 (Version None)
Quarter: 2009Q1

REPORT INFORMATION
  Report Type: 
  Country: None (occurrence: None)
  Receive Date: 20090128
  Receipt Date: 20090124
  Transmission Date: 20090719
  Serious: Yes (Death, Other)
  Sender: FDA-Public Use
  Company Number: PHHY2009DE02652

PATIENT
  Sex: Female

DRUGS (1)
  1. EXJADE [Suspect]
     Dosage: 2000 MG, QD
     Route: 048
     Dates: start: 20080401, end: 20081212

REACTIONS (4)
  - GASTROINTESTINAL SURGERY [None]
  - INTESTINAL STRANGULATION [None]
  - MULTI-ORGAN FAILURE [None]
  - SEPTIC SHOCK [None]
